FAERS Safety Report 4728072-5 (Version None)
Quarter: 2005Q3

REPORT INFORMATION
  Report Type: 
  Country: None (occurrence: None)
  Receive Date: 20050729
  Receipt Date: 20050720
  Transmission Date: 20060218
  Serious: Yes (Other)
  Sender: FDA-Public Use
  Company Number: PHEH2005US08058

PATIENT
  Age: 64 Year
  Sex: Male

DRUGS (2)
  1. ZOMETA [Suspect]
     Indication: METASTASES TO BONE
     Dosage: 4 MG MONTHLY
     Dates: start: 20040901, end: 20050701
  2. SANDOSTATIN LAR [Concomitant]

REACTIONS (2)
  - ASEPTIC NECROSIS BONE [None]
  - TOOTH EXTRACTION [None]
